FAERS Safety Report 5627875-2 (Version None)
Quarter: 2008Q1

REPORT INFORMATION
  Report Type: 
  Country: None (occurrence: None)
  Receive Date: 20080215
  Receipt Date: 20080212
  Transmission Date: 20080703
  Serious: Yes (Hospitalization, Disabling, Other)
  Sender: FDA-Public Use
  Company Number: GB-MERCK-0801GBR00114

PATIENT
  Age: 43 Year
  Sex: Female
  Weight: 59 kg

DRUGS (4)
  1. TIMOPTIC [Suspect]
     Indication: GLAUCOMA
     Route: 047
     Dates: start: 20070901
  2. BETAMETHASONE SODIUM PHOSPHATE [Concomitant]
     Indication: SURGERY
     Route: 065
     Dates: start: 20070901
  3. CHLORAMPHENICOL [Concomitant]
     Indication: SURGERY
     Route: 065
     Dates: start: 20070901
  4. CARBOXYMETHYLCELLULOSE SODIUM [Concomitant]
     Indication: DRY EYE
     Route: 065

REACTIONS (1)
  - KERATOPATHY [None]
